FAERS Safety Report 8137357 (Version 2)
Quarter: 2013Q4

REPORT INFORMATION
  Report Type: Report from Study
  Country: GB (occurrence: GB)
  Receive Date: 20110915
  Receipt Date: 20131210
  Transmission Date: 20140711
  Serious: Yes (Hospitalization)
  Sender: FDA-Public Use
  Company Number: GB-MPIJNJ-2008-01780

PATIENT
  Sex: 0

DRUGS (3)
  1. VELCADE [Suspect]
     Indication: PLASMA CELL MYELOMA
     Dosage: 1.3 MG/M2, UNK
     Route: 042
     Dates: start: 20080513, end: 20080520
  2. IDARUBICIN [Suspect]
     Indication: PLASMA CELL MYELOMA
     Dosage: 5 MG/M2, UNK
     Route: 048
     Dates: start: 20080516, end: 20080520
  3. MELPHALAN [Suspect]
     Indication: PLASMA CELL MYELOMA
     Dosage: 15 MG/M2, UNK
     Route: 042
     Dates: start: 20080516, end: 20080520

REACTIONS (4)
  - Circulatory collapse [Recovered/Resolved]
  - Diarrhoea [Unknown]
  - Dehydration [Unknown]
  - Hypotension [Unknown]
